FAERS Safety Report 19186110 (Version 1)
Quarter: 2021Q2

REPORT INFORMATION
  Report Type: Report from Study
  Country: CA (occurrence: CA)
  Receive Date: 20210427
  Receipt Date: 20210427
  Transmission Date: 20210717
  Serious: Yes (Other)
  Sender: FDA-Public Use
  Company Number: CA-ABBVIE-20K-028-3439052-00

PATIENT
  Sex: Male

DRUGS (1)
  1. HUMIRA [Suspect]
     Active Substance: ADALIMUMAB
     Indication: PSORIATIC ARTHROPATHY
     Route: 058
     Dates: start: 20160128

REACTIONS (5)
  - Wound [Recovered/Resolved]
  - Impaired healing [Recovering/Resolving]
  - Localised infection [Recovered/Resolved]
  - Pain in extremity [Unknown]
  - Unevaluable event [Recovering/Resolving]
